FAERS Safety Report 6844221-7 (Version None)
Quarter: 2010Q3

REPORT INFORMATION
  Report Type: 
  Country: None (occurrence: None)
  Receive Date: 20100715
  Receipt Date: 20100707
  Transmission Date: 20110219
  Serious: Yes (Other)
  Sender: FDA-Public Use
  Company Number: B0664668A

PATIENT
  Age: 74 Year
  Sex: Female

DRUGS (4)
  1. SERETIDE [Suspect]
     Indication: ASTHMA
     Dosage: 500MCG PER DAY
     Route: 055
     Dates: start: 20100501, end: 20100609
  2. NORVASC [Concomitant]
     Route: 048
  3. ZYRTEC [Concomitant]
     Route: 048
  4. FLUITRAN [Concomitant]
     Route: 048

REACTIONS (1)
  - DERMATITIS BULLOUS [None]
